FAERS Safety Report 4830870-4 (Version None)
Quarter: 2005Q4

REPORT INFORMATION
  Report Type: 
  Country: None (occurrence: None)
  Receive Date: 20051117
  Receipt Date: 20030404
  Transmission Date: 20060501
  Serious: Yes (Hospitalization)
  Sender: FDA-Public Use
  Company Number: GB-BOEHRINGER INGELHEIM PHARMACEUTICALS, INC.-2005-UK-02366UK

PATIENT
  Age: 70 Year
  Sex: Male

DRUGS (8)
  1. ATROVENT [Suspect]
     Indication: CHRONIC OBSTRUCTIVE PULMONARY DISEASE
     Dosage: 2 PUFFS TWICE DAILY
  2. SERETIDE [Suspect]
     Dosage: 2 PUFFS TWICE DAILY
  3. FUROSEMIDE [Concomitant]
     Dosage: 40 MG MANE
  4. CANDESARTAN [Concomitant]
     Dosage: 8 MG ONCE DAILY
  5. ATORVASTATIN CALCIUM [Concomitant]
     Dosage: 20 MG NOCTE
  6. TEGRETOL [Concomitant]
     Dosage: 200 MG TWICE DAILY
  7. PREDNISOLONE [Concomitant]
     Dosage: 30 MG ONCE DAILY
  8. SALBUTAMOL [Concomitant]
     Dosage: 2 PUFFS FOUR TIMES DAILY

REACTIONS (1)
  - INFECTIVE EXACERBATION OF CHRONIC OBSTRUCTIVE AIRWAYS DISEASE [None]
